FAERS Safety Report 9515144 (Version 2)
Quarter: 2014Q1

REPORT INFORMATION
  Report Type: Spontaneous
  Country: US (occurrence: None)
  Receive Date: 20130305
  Receipt Date: 20140306
  Transmission Date: 20141002
  Serious: Yes (Other)
  Sender: FDA-Public Use
  Company Number: 163-21880-12121683

PATIENT
  Age: 68 Year
  Sex: Female
  Weight: 79.4 kg

DRUGS (10)
  1. REVLIMID [Suspect]
     Indication: PLASMA CELL MYELOMA
     Dosage: 15 MG, 21 IN 28 D, PO
     Route: 048
     Dates: start: 20120829
  2. LIPITOR (ATORVASTATIN) [Concomitant]
  3. CALCITRIOL (CALCITRIOL) [Concomitant]
  4. LISINOPRIL (LISINOPRIL) [Concomitant]
  5. PV SODIUM BICARBONATE (SODIUM BICARBONATE) [Concomitant]
  6. VITAL D RX (ERGOCALCIFEROL) [Concomitant]
  7. DEXAMETHASONE (DEXAMETHASONE) [Concomitant]
  8. CLONAZEPAM (CLONAZEPAM) [Concomitant]
  9. TESTOSTERONE (TESTOSTERONE) [Concomitant]
  10. METOPROLOL SUCCINATE (METOPROLOL SUCCINATE) [Concomitant]

REACTIONS (1)
  - Thrombosis [None]
